FAERS Safety Report 7221324-9 (Version None)
Quarter: 2011Q1

REPORT INFORMATION
  Report Type: 
  Country: None (occurrence: None)
  Receive Date: 20110112
  Receipt Date: 20110107
  Transmission Date: 20110831
  Serious: Yes (Death, Other)
  Sender: FDA-Public Use
  Company Number: FR-ABBOTT-10P-056-0691253-00

PATIENT

DRUGS (2)
  1. TRUVADA [Suspect]
     Indication: DRUG EXPOSURE DURING PREGNANCY
     Route: 064
  2. KALETRA [Suspect]
     Indication: DRUG EXPOSURE DURING PREGNANCY
     Route: 064

REACTIONS (3)
  - ABORTION INDUCED [None]
  - HYDROCEPHALUS [None]
  - DRUG EXPOSURE DURING PREGNANCY [None]
